FAERS Safety Report 17646095 (Version 1)
Quarter: 2020Q2

REPORT INFORMATION
  Report Type: Spontaneous
  Country: US (occurrence: US)
  Receive Date: 20200408
  Receipt Date: 20200408
  Transmission Date: 20200713
  Serious: No
  Sender: FDA-Public Use
  Company Number: US-SA-2020SA088637

PATIENT
  Age: 63 Year
  Sex: Female

DRUGS (1)
  1. TOUJEO [Suspect]
     Active Substance: INSULIN GLARGINE
     Indication: TYPE 1 DIABETES MELLITUS
     Dosage: 34 UNITS OF TOUJEO IN THE MORNING AND 12 UNITS OF TOUJEO AT NIGHT
     Route: 065

REACTIONS (2)
  - Inappropriate schedule of product administration [Unknown]
  - Product use complaint [Unknown]
